FAERS Safety Report 5298167-9 (Version None)
Quarter: 2007Q1

REPORT INFORMATION
  Report Type: 
  Country: None (occurrence: None)
  Receive Date: 20070205
  Receipt Date: 20061130
  Transmission Date: 20070707
  Serious: Yes (Other)
  Sender: FDA-Public Use
  Company Number: US200612000609

PATIENT
  Age: 68 Year
  Sex: Female

DRUGS (1)
  1. EVISTA [Suspect]
     Dosage: 60 MG, ORAL
     Route: 048
     Dates: start: 20051201

REACTIONS (2)
  - DEEP VEIN THROMBOSIS [None]
  - PAIN IN EXTREMITY [None]
